FAERS Safety Report 9788661 (Version 1)
Quarter: 2013Q4

REPORT INFORMATION
  Report Type: Spontaneous
  Country: RU (occurrence: RU)
  Receive Date: 20131230
  Receipt Date: 20131230
  Transmission Date: 20140711
  Serious: Yes (Hospitalization)
  Sender: FDA-Public Use
  Company Number: PHHY2013RU151896

PATIENT
  Age: 59 Year
  Sex: Male

DRUGS (3)
  1. GLIVEC [Suspect]
     Route: 048
  2. PLATYPHYLLINE [Concomitant]
  3. OMEPRAZOL//OMEPRAZOLE [Concomitant]

REACTIONS (3)
  - Pain [Recovering/Resolving]
  - Duodenal ulcer [Recovering/Resolving]
  - Dyspepsia [Recovering/Resolving]
